FAERS Safety Report 8241189-6 (Version None)
Quarter: 2012Q1

REPORT INFORMATION
  Report Type: 
  Country: None (occurrence: None)
  Receive Date: 20120328
  Receipt Date: 20120321
  Transmission Date: 20120608
  Serious: Yes (Hospitalization)
  Sender: FDA-Public Use
  Company Number: JP-EISAI INC-E7389-02074-SPO-JP

PATIENT
  Age: 65 Year
  Sex: Female

DRUGS (3)
  1. DEXAMETHASONE SODIUM PHOSPHATE [Concomitant]
     Route: 065
     Dates: start: 20120206
  2. HALAVEN [Suspect]
     Indication: BREAST CANCER
     Route: 041
     Dates: start: 20111209, end: 20120131
  3. MEDROXYPROGESTERONE ACETATE [Concomitant]
     Indication: BREAST CANCER
     Route: 065
     Dates: start: 20120316

REACTIONS (1)
  - INTERSTITIAL LUNG DISEASE [None]
